FAERS Safety Report 20654046 (Version 1)
Quarter: 2022Q1

REPORT INFORMATION
  Report Type: Report from Study
  Country: US (occurrence: US)
  Receive Date: 20220330
  Receipt Date: 20220330
  Transmission Date: 20220424
  Serious: Yes (Hospitalization, Other)
  Sender: FDA-Public Use
  Company Number: US-PHARMACOVIGILANCE-US-KAD-22-00352

PATIENT
  Sex: Male

DRUGS (1)
  1. REZUROCK [Suspect]
     Active Substance: BELUMOSUDIL
     Indication: Chronic graft versus host disease
     Dosage: 200 MILLIGRAM, BID
     Route: 065
     Dates: start: 20210831

REACTIONS (5)
  - COVID-19 [Unknown]
  - Bacterial infection [Unknown]
  - Chronic graft versus host disease [Unknown]
  - Muscle spasms [Unknown]
  - Drug ineffective [Unknown]
